FAERS Safety Report 24613972 (Version 1)
Quarter: 2024Q4

REPORT INFORMATION
  Report Type: Spontaneous
  Country: JP (occurrence: JP)
  Receive Date: 20241113
  Receipt Date: 20241113
  Transmission Date: 20250114
  Serious: Yes (Hospitalization, Other)
  Sender: BAXTER
  Company Number: JP-BAXTER-2024BAX027336

PATIENT
  Sex: Female
  Weight: 42.1 kg

DRUGS (2)
  1. DOXORUBICIN [Suspect]
     Active Substance: DOXORUBICIN
     Indication: Serous cystadenocarcinoma ovary
     Dosage: SIX CYCLES OF INDUCTION THERAPY WITH PEGYLATED LIPOSOMAL DOXORUBICIN (PLD), A CONSOLIDATION THERAPY
     Route: 065
  2. DOXORUBICIN [Suspect]
     Active Substance: DOXORUBICIN
     Indication: Recurrent cancer
     Dosage: CUMULATIVE DOSAGE OF 1,447 MG/M2 OVER 36 CYCLES IN 5 YEARS
     Route: 065

REACTIONS (8)
  - Renal-limited thrombotic microangiopathy [Unknown]
  - Hypertension [Unknown]
  - Proteinuria [Not Recovered/Not Resolved]
  - Renal impairment [Recovered/Resolved]
  - Oedema peripheral [Unknown]
  - Interstitial lung disease [Unknown]
  - Renal atrophy [Unknown]
  - Thrombocytopenia [Unknown]
